FAERS Safety Report 5444851-3 (Version None)
Quarter: 2007Q3

REPORT INFORMATION
  Report Type: 
  Country: None (occurrence: None)
  Receive Date: 20070906
  Receipt Date: 20070404
  Transmission Date: 20080115
  Serious: No
  Sender: FDA-Public Use
  Company Number: A0645993A

PATIENT
  Age: 54 Year
  Sex: Female

DRUGS (3)
  1. REQUIP [Suspect]
     Indication: RESTLESS LEGS SYNDROME
     Dosage: 1.5MG AT NIGHT
     Route: 048
     Dates: start: 20051101
  2. LEXAPRO [Concomitant]
  3. DITROPAN [Concomitant]

REACTIONS (7)
  - DRUG LEVEL INCREASED [None]
  - DYSKINESIA [None]
  - ILL-DEFINED DISORDER [None]
  - NAUSEA [None]
  - SOMNOLENCE [None]
  - THERAPEUTIC RESPONSE DECREASED [None]
  - TREATMENT NONCOMPLIANCE [None]
